FAERS Safety Report 15722905 (Version 4)
Quarter: 2019Q1

REPORT INFORMATION
  Report Type: Spontaneous
  Country: US (occurrence: US)
  Receive Date: 20181214
  Receipt Date: 20190328
  Transmission Date: 20190417
  Serious: Yes (Other)
  Sender: FDA-Public Use
  Company Number: US-TEVA-2018-US-985270

PATIENT
  Age: 31 Year
  Sex: Female

DRUGS (2)
  1. LOSARTAN POTASSIUM TABLETS- TEVA [Suspect]
     Active Substance: LOSARTAN POTASSIUM
     Indication: BREAST CANCER
     Dates: start: 201708, end: 201801
  2. LOSARTAN POTASSIUM TABLETS- TEVA [Suspect]
     Active Substance: LOSARTAN POTASSIUM
     Dates: start: 20171113, end: 20180219

REACTIONS (3)
  - Breast cancer stage III [Not Recovered/Not Resolved]
  - Triple negative breast cancer [Not Recovered/Not Resolved]
  - Recalled product administered [Unknown]

NARRATIVE: CASE EVENT DATE: 201711
